FAERS Safety Report 15945053 (Version 1)
Quarter: 2019Q1

REPORT INFORMATION
  Report Type: Spontaneous
  Country: US (occurrence: US)
  Receive Date: 20190211
  Receipt Date: 20190211
  Transmission Date: 20190417
  Serious: Yes (Other)
  Sender: FDA-Public Use
  Company Number: US-SA-2015SA017417

PATIENT
  Age: 23 Year
  Sex: Male

DRUGS (1)
  1. ALDURAZYME [Suspect]
     Active Substance: LARONIDASE
     Indication: MUCOPOLYSACCHARIDOSIS I
     Dosage: 55.1 MG,QW
     Route: 041
     Dates: start: 20150107

REACTIONS (5)
  - Lymphadenopathy [Unknown]
  - Limb injury [Unknown]
  - Nasopharyngitis [Unknown]
  - Sialoadenitis [Unknown]
  - Sinusitis [Unknown]

NARRATIVE: CASE EVENT DATE: 20150130
